FAERS Safety Report 8156174-2 (Version None)
Quarter: 2012Q1

REPORT INFORMATION
  Report Type: 
  Country: None (occurrence: None)
  Receive Date: 20120222
  Receipt Date: 20120213
  Transmission Date: 20120608
  Serious: Yes (Other)
  Sender: FDA-Public Use
  Company Number: US-JNJFOC-20120207864

PATIENT
  Age: 3 Decade
  Sex: Male

DRUGS (3)
  1. CYMBALTA [Concomitant]
     Route: 065
  2. BENADRYL [Concomitant]
     Route: 065
  3. INVEGA SUSTENNA [Suspect]
     Indication: SCHIZOPHRENIA
     Route: 030
     Dates: start: 20111101

REACTIONS (1)
  - BLOOD GLUCOSE INCREASED [None]
